FAERS Safety Report 16715795 (Version 2)
Quarter: 2019Q3

REPORT INFORMATION
  Report Type: Spontaneous
  Country: CA (occurrence: CA)
  Receive Date: 20190819
  Receipt Date: 20190912
  Transmission Date: 20191005
  Serious: Yes (Other)
  Sender: FDA-Public Use
  Company Number: CA-PFIZER INC-2019334451

PATIENT
  Age: 67 Year
  Sex: Female

DRUGS (4)
  1. CORTIMENT [BUDESONIDE] [Concomitant]
     Active Substance: BUDESONIDE
     Dosage: UNK
  2. XELJANZ [Suspect]
     Active Substance: TOFACITINIB CITRATE
     Indication: COLITIS ULCERATIVE
     Dosage: 10 MG, TWICE A DAY
     Route: 048
     Dates: start: 20190726, end: 20190806
  3. ASACOL [Concomitant]
     Active Substance: MESALAMINE
     Dosage: UNK
  4. ELIQUIS [Concomitant]
     Active Substance: APIXABAN
     Dosage: UNK
     Dates: start: 20190808

REACTIONS (10)
  - Joint stiffness [Unknown]
  - Disease recurrence [Unknown]
  - Faeces soft [Unknown]
  - Haematochezia [Recovering/Resolving]
  - Dyspepsia [Unknown]
  - Thrombophlebitis [Unknown]
  - Headache [Unknown]
  - Product dose omission [Unknown]
  - Peripheral swelling [Recovering/Resolving]
  - Limb discomfort [Unknown]

NARRATIVE: CASE EVENT DATE: 20190726
